FAERS Safety Report 19937124 (Version 2)
Quarter: 2021Q4

REPORT INFORMATION
  Report Type: Spontaneous
  Country: US (occurrence: US)
  Receive Date: 20211010
  Receipt Date: 20211229
  Transmission Date: 20220303
  Serious: No
  Sender: FDA-Public Use
  Company Number: US-SA-SAC20211005001443

PATIENT
  Age: 68 Year
  Sex: Female

DRUGS (1)
  1. DUPIXENT [Suspect]
     Active Substance: DUPILUMAB
     Indication: Dermatitis
     Dosage: 300 MG
     Route: 058
     Dates: start: 20210820

REACTIONS (3)
  - Product used for unknown indication [Unknown]
  - Arthralgia [Unknown]
  - Joint stiffness [Unknown]

NARRATIVE: CASE EVENT DATE: 20210820
